FAERS Safety Report 4813325-2 (Version None)
Quarter: 2005Q4

REPORT INFORMATION
  Report Type: 
  Country: None (occurrence: None)
  Receive Date: 20051028
  Receipt Date: 20050502
  Transmission Date: 20060501
  Serious: No
  Sender: FDA-Public Use
  Company Number: US-GLAXOSMITHKLINE-A0556896A

PATIENT
  Sex: Male

DRUGS (4)
  1. ADVAIR DISKUS 100/50 [Suspect]
     Indication: DRUG USE FOR UNKNOWN INDICATION
     Route: 055
  2. PROZAC [Concomitant]
     Dosage: 20MG UNKNOWN
     Route: 065
  3. TENORMIN [Concomitant]
     Dosage: 50MG UNKNOWN
     Route: 065
  4. CARDIZEM [Concomitant]
     Dosage: 300MG UNKNOWN
     Route: 065

REACTIONS (3)
  - DYSGEUSIA [None]
  - POLLAKIURIA [None]
  - YAWNING [None]
